FAERS Safety Report 13347615 (Version 2)
Quarter: 2018Q4

REPORT INFORMATION
  Report Type: Report from Study
  Country: BR (occurrence: BR)
  Receive Date: 20170317
  Receipt Date: 20181112
  Transmission Date: 20190204
  Serious: Yes (Hospitalization)
  Sender: FDA-Public Use
  Company Number: BR-BIOGEN-2016BI00221581

PATIENT
  Sex: Female

DRUGS (2)
  1. AVONEX [Suspect]
     Active Substance: INTERFERON BETA-1A
     Route: 030
     Dates: start: 201301
  2. AVONEX [Suspect]
     Active Substance: INTERFERON BETA-1A
     Indication: MULTIPLE SCLEROSIS
     Route: 030
     Dates: start: 200704

REACTIONS (8)
  - Pain [Unknown]
  - Osteoarthritis [Unknown]
  - Multiple sclerosis relapse [Not Recovered/Not Resolved]
  - Visual impairment [Unknown]
  - Depression [Unknown]
  - Spinal osteoarthritis [Unknown]
  - Multiple sclerosis [Unknown]
  - Anxiety [Unknown]

NARRATIVE: CASE EVENT DATE: 2016
